FAERS Safety Report 18658288 (Version 2)
Quarter: 2022Q2

REPORT INFORMATION
  Report Type: Spontaneous
  Country: US (occurrence: US)
  Receive Date: 20201223
  Receipt Date: 20220622
  Transmission Date: 20220721
  Serious: Yes (Other)
  Sender: FDA-Public Use
  Company Number: US-COOPERSURGICAL, INC.-US-2020CPS001333

PATIENT
  Age: 34 Year
  Sex: Female
  Weight: 61.224 kg

DRUGS (2)
  1. PARAGARD T 380A [Suspect]
     Active Substance: COPPER
     Indication: Contraception
     Dosage: UNK
     Route: 015
     Dates: start: 20141020, end: 20200714
  2. IBUPROFEN [Concomitant]
     Active Substance: IBUPROFEN
     Indication: Product used for unknown indication
     Dosage: UNK
     Route: 065

REACTIONS (17)
  - Injury associated with device [Unknown]
  - Reproductive complication associated with device [Unknown]
  - Deformity [Unknown]
  - Inflammation [Unknown]
  - Device breakage [Recovered/Resolved]
  - Foreign body in reproductive tract [Recovered/Resolved]
  - Complication of device removal [Recovered/Resolved]
  - Embedded device [Recovered/Resolved]
  - Uterine perforation [Unknown]
  - Device material issue [Unknown]
  - Anxiety [Unknown]
  - Discomfort [Unknown]
  - Emotional distress [Unknown]
  - Economic problem [Unknown]
  - Device dislocation [Recovered/Resolved]
  - Dyspareunia [Unknown]
  - Pain [Unknown]

NARRATIVE: CASE EVENT DATE: 20200519
